FAERS Safety Report 7763122-3 (Version None)
Quarter: 2011Q3

REPORT INFORMATION
  Report Type: 
  Country: None (occurrence: None)
  Receive Date: 20110920
  Receipt Date: 20110908
  Transmission Date: 20111222
  Serious: Yes (Hospitalization)
  Sender: FDA-Public Use
  Company Number: PHHY2011AU80275

PATIENT
  Sex: Female

DRUGS (1)
  1. GLEEVEC [Suspect]
     Indication: CHRONIC MYELOID LEUKAEMIA
     Dosage: 600 MG, DAILY
     Route: 048
     Dates: start: 20110511, end: 20110520

REACTIONS (6)
  - PALPITATIONS [None]
  - TACHYCARDIA [None]
  - PULMONARY EMBOLISM [None]
  - HEART VALVE INCOMPETENCE [None]
  - FLUID RETENTION [None]
  - ANAEMIA [None]
